FAERS Safety Report 13635238 (Version 1)
Quarter: 2017Q2

REPORT INFORMATION
  Report Type: Spontaneous
  Country: US (occurrence: US)
  Receive Date: 20170609
  Receipt Date: 20170609
  Transmission Date: 20170830
  Serious: No
  Sender: FDA-Public Use
  Company Number: US-PFIZER INC-2017248073

PATIENT
  Age: 55 Year
  Sex: Female

DRUGS (1)
  1. CELONTIN [Suspect]
     Active Substance: METHSUXIMIDE
     Dosage: UNK

REACTIONS (1)
  - Drug hypersensitivity [Unknown]
